FAERS Safety Report 25353413 (Version 2)
Quarter: 2025Q2

REPORT INFORMATION
  Report Type: Spontaneous
  Country: US (occurrence: US)
  Receive Date: 20250523
  Receipt Date: 20250605
  Transmission Date: 20250717
  Serious: No
  Sender: BAYER HEALTHCARE PHARMACEUTICALS INC.
  Company Number: US-BAYER-2025A068999

PATIENT
  Age: 43 Year
  Sex: Female

DRUGS (6)
  1. KYLEENA [Suspect]
     Active Substance: LEVONORGESTREL
     Indication: Intrauterine contraception
     Dosage: 17.5?G/DAY
     Route: 015
     Dates: start: 202404
  2. ICATIBANT [Concomitant]
     Active Substance: ICATIBANT ACETATE
  3. RUCONEST [Concomitant]
     Active Substance: CONESTAT ALFA
  4. SALINE [Concomitant]
     Active Substance: SODIUM CHLORIDE
     Route: 042
  5. STERILE WATER [Concomitant]
     Active Substance: WATER
     Route: 042
  6. HAEGARDA [Concomitant]
     Active Substance: HUMAN C1-ESTERASE INHIBITOR

REACTIONS (3)
  - Abdominal distension [Not Recovered/Not Resolved]
  - Facial discomfort [Not Recovered/Not Resolved]
  - Multiple allergies [Recovered/Resolved]

NARRATIVE: CASE EVENT DATE: 20250424
